FAERS Safety Report 5496720-0 (Version None)
Quarter: 2007Q4

REPORT INFORMATION
  Report Type: 
  Country: None (occurrence: None)
  Receive Date: 20071023
  Receipt Date: 20071023
  Transmission Date: 20080405
  Serious: No
  Sender: FDA-Public Use
  Company Number: None

PATIENT
  Sex: Male
  Weight: 93 kg

DRUGS (1)
  1. CIALIS [Suspect]
     Dosage: ONE PILL  WEEK  BUCCAL
     Route: 002

REACTIONS (3)
  - DEAFNESS UNILATERAL [None]
  - DRUG INEFFECTIVE [None]
  - TINNITUS [None]
